FAERS Safety Report 10173077 (Version 1)
Quarter: 2014Q2

REPORT INFORMATION
  Report Type: Spontaneous
  Country: US (occurrence: None)
  Receive Date: 20140514
  Receipt Date: 20140514
  Transmission Date: 20141212
  Serious: Yes (Hospitalization)
  Sender: FDA-Public Use
  Company Number: None

PATIENT
  Age: 69 Year
  Sex: Female
  Weight: 73.94 kg

DRUGS (1)
  1. VANCOMYCIN [Suspect]

REACTIONS (1)
  - Clostridium difficile infection [None]
